FAERS Safety Report 15208640 (Version 3)
Quarter: 2018Q4

REPORT INFORMATION
  Report Type: Spontaneous
  Country: ES (occurrence: ES)
  Receive Date: 20180727
  Receipt Date: 20181102
  Transmission Date: 20190204
  Serious: Yes (Other)
  Sender: FDA-Public Use
  Company Number: ES-SA-2018SA195454

PATIENT
  Age: 56 Year
  Sex: Female

DRUGS (2)
  1. CLEXANE SYRINGES [Suspect]
     Active Substance: ENOXAPARIN SODIUM
     Indication: SURGERY
     Dosage: 4000 IU, UNK
     Route: 065
     Dates: start: 20180704, end: 20180705
  2. EUTIROX [Concomitant]
     Active Substance: LEVOTHYROXINE SODIUM
     Dosage: 25 MG, UNK
     Route: 065

REACTIONS (22)
  - Swollen tongue [Recovering/Resolving]
  - Tongue discomfort [Recovering/Resolving]
  - Arthralgia [Recovering/Resolving]
  - Malaise [Recovered/Resolved]
  - Injection site pain [Recovering/Resolving]
  - Skin reaction [Recovered/Resolved]
  - Pain [Recovering/Resolving]
  - Hypoaesthesia [Recovering/Resolving]
  - Asthenia [Recovering/Resolving]
  - Muscle spasms [Recovering/Resolving]
  - Rash [Recovering/Resolving]
  - Faeces discoloured [Recovered/Resolved]
  - Haematochezia [Recovered/Resolved]
  - Fatigue [Recovering/Resolving]
  - Dizziness [Recovering/Resolving]
  - Inflammation [Recovering/Resolving]
  - Ocular icterus [Recovering/Resolving]
  - Renal pain [Recovering/Resolving]
  - Pruritus [Recovering/Resolving]
  - Headache [Recovering/Resolving]
  - Thrombosis [Recovering/Resolving]
  - Lip disorder [Recovering/Resolving]

NARRATIVE: CASE EVENT DATE: 20180704
